FAERS Safety Report 5249868-X (Version None)
Quarter: 2007Q1

REPORT INFORMATION
  Report Type: 
  Country: None (occurrence: None)
  Receive Date: 20070228
  Receipt Date: 20070222
  Transmission Date: 20070707
  Serious: Yes (Other)
  Sender: FDA-Public Use
  Company Number: 2007AP01274

PATIENT
  Age: 29 Year
  Sex: Female

DRUGS (4)
  1. MERONEM [Suspect]
     Indication: PNEUMONIA
     Route: 042
  2. PHENYTOIN [Suspect]
     Indication: GRAND MAL CONVULSION
     Route: 048
  3. PHENYTOIN [Suspect]
     Route: 042
  4. NATRILIX SR [Suspect]
     Indication: HYPERTENSION
     Route: 048

REACTIONS (5)
  - EYE SWELLING [None]
  - LIP SWELLING [None]
  - PRURITUS [None]
  - RASH MACULO-PAPULAR [None]
  - STEVENS-JOHNSON SYNDROME [None]
